FAERS Safety Report 7437831-X (Version None)
Quarter: 2011Q2

REPORT INFORMATION
  Report Type: 
  Country: None (occurrence: None)
  Receive Date: 20110421
  Receipt Date: 20110421
  Transmission Date: 20111010
  Serious: Yes (Hospitalization)
  Sender: FDA-Public Use
  Company Number: None

PATIENT
  Age: 40 Year
  Sex: Male
  Weight: 98.8 kg

DRUGS (1)
  1. ABACAVIR SULFATE AND LAMIVUDINE [Suspect]
     Indication: HIV INFECTION
     Dosage: 60MG MG EVERY DAY PO
     Route: 048
     Dates: start: 20100826, end: 20101015

REACTIONS (6)
  - MYALGIA [None]
  - NAUSEA [None]
  - HEPATIC ENZYME INCREASED [None]
  - ARTHRALGIA [None]
  - VOMITING [None]
  - HYPERSENSITIVITY [None]
